FAERS Safety Report 21010975 (Version 1)
Quarter: 2022Q2

REPORT INFORMATION
  Report Type: Spontaneous
  Country: JP (occurrence: JP)
  Receive Date: 20220627
  Receipt Date: 20220627
  Transmission Date: 20220721
  Serious: Yes (Hospitalization, Other)
  Sender: FDA-Public Use
  Company Number: JP-TEVA-2022-JP-2050648

PATIENT
  Age: 8 Decade
  Sex: Male

DRUGS (15)
  1. AZILECT [Suspect]
     Active Substance: RASAGILINE MESYLATE
     Indication: Parkinson^s disease
     Dosage: .5 MILLIGRAM DAILY; AZILECT TABLETS 1MG (RASAGILINE MESYLATE) TABLET
     Route: 048
  2. ROPINIROLE HYDROCHLORIDE [Concomitant]
     Active Substance: ROPINIROLE HYDROCHLORIDE
     Indication: Product used for unknown indication
     Dosage: 56 MILLIGRAM DAILY;
     Route: 065
  3. ENTACAPONE [Concomitant]
     Active Substance: ENTACAPONE
     Indication: Product used for unknown indication
     Dosage: 300 MILLIGRAM DAILY;
     Route: 065
  4. ENTACAPONE [Concomitant]
     Active Substance: ENTACAPONE
     Dosage: 600 MILLIGRAM DAILY;
     Route: 065
  5. LEVODOPA [Concomitant]
     Active Substance: LEVODOPA
     Indication: Parkinson^s disease
     Dosage: 500 MILLIGRAM DAILY;
     Route: 065
  6. LEVODOPA [Concomitant]
     Active Substance: LEVODOPA
     Dosage: 600 MILLIGRAM DAILY;
     Route: 065
  7. ZONISAMIDE [Concomitant]
     Active Substance: ZONISAMIDE
     Indication: Product used for unknown indication
     Dosage: 50 MILLIGRAM DAILY;
     Route: 065
  8. ROTIGOTINE [Concomitant]
     Active Substance: ROTIGOTINE
     Indication: Product used for unknown indication
     Dosage: 4.5 MILLIGRAM DAILY;
     Route: 065
  9. ROTIGOTINE [Concomitant]
     Active Substance: ROTIGOTINE
     Dosage: 9 MILLIGRAM DAILY;
     Route: 065
  10. ROTIGOTINE [Concomitant]
     Active Substance: ROTIGOTINE
     Dosage: 13.5 MILLIGRAM DAILY;
     Route: 065
  11. ROTIGOTINE [Concomitant]
     Active Substance: ROTIGOTINE
     Dosage: 18 MILLIGRAM DAILY;
     Route: 065
  12. ROTIGOTINE [Concomitant]
     Active Substance: ROTIGOTINE
     Dosage: 22.5 MILLIGRAM DAILY;
     Route: 065
  13. ROTIGOTINE [Concomitant]
     Active Substance: ROTIGOTINE
     Dosage: 27 MILLIGRAM DAILY;
     Route: 065
  14. ROTIGOTINE [Concomitant]
     Active Substance: ROTIGOTINE
     Dosage: 31.5 MILLIGRAM DAILY;
     Route: 065
  15. ROTIGOTINE [Concomitant]
     Active Substance: ROTIGOTINE
     Dosage: 36 MILLIGRAM DAILY;
     Route: 065

REACTIONS (2)
  - Fall [Unknown]
  - Spinal fracture [Unknown]
